FAERS Safety Report 15215023 (Version 1)
Quarter: 2018Q3

REPORT INFORMATION
  Report Type: Report from Study
  Country: EG (occurrence: EG)
  Receive Date: 20180730
  Receipt Date: 20180730
  Transmission Date: 20181010
  Serious: Yes (Hospitalization)
  Sender: FDA-Public Use
  Company Number: EG-SA-2018SA195965

PATIENT
  Age: 14 Year
  Sex: Female

DRUGS (10)
  1. NOVORAPID [Concomitant]
     Active Substance: INSULIN ASPART
     Dosage: 15 UNK
  2. INSULIN GLARGINE [Suspect]
     Active Substance: INSULIN GLARGINE
     Indication: TYPE 1 DIABETES MELLITUS
     Dosage: 16 UNK
     Route: 058
  3. NOVORAPID [Concomitant]
     Active Substance: INSULIN ASPART
     Dosage: 10 IU
  4. INSULIN GLARGINE [Suspect]
     Active Substance: INSULIN GLARGINE
     Dosage: 24 IU, QD
     Route: 058
     Dates: start: 201601, end: 20180715
  5. TOUJEO [Suspect]
     Active Substance: INSULIN GLARGINE
     Indication: TYPE 1 DIABETES MELLITUS
     Dosage: 30 IU, QD
     Route: 058
     Dates: start: 20180716
  6. ACTRAPID [INSULIN HUMAN] [Concomitant]
     Dosage: 24 IU, QD
  7. NOVORAPID [Concomitant]
     Active Substance: INSULIN ASPART
     Dosage: 15 IU
  8. MILGA [Concomitant]
  9. ACTRAPID [INSULIN HUMAN] [Concomitant]
     Dosage: 30 IU, QD
  10. ACTRAPID [INSULIN HUMAN] [Concomitant]
     Dosage: 20 IU, QD

REACTIONS (3)
  - Diabetic ketoacidosis [Recovering/Resolving]
  - Hyperglycaemia [Recovering/Resolving]
  - Off label use [Unknown]

NARRATIVE: CASE EVENT DATE: 20180716
